FAERS Safety Report 5914861-8 (Version None)
Quarter: 2008Q4

REPORT INFORMATION
  Report Type: 
  Country: None (occurrence: None)
  Receive Date: 20081010
  Receipt Date: 20081002
  Transmission Date: 20090506
  Serious: Yes (Other)
  Sender: FDA-Public Use
  Company Number: PHHY2008DE23157

PATIENT

DRUGS (1)
  1. ACLASTA [Suspect]
     Dosage: UNK
     Dates: start: 20081001

REACTIONS (3)
  - ASTHMA [None]
  - INFLUENZA LIKE ILLNESS [None]
  - MYALGIA [None]
